FAERS Safety Report 9613598 (Version 1)
Quarter: 2013Q4

REPORT INFORMATION
  Report Type: Spontaneous
  Country: FR (occurrence: None)
  Receive Date: 20131008
  Receipt Date: 20131008
  Transmission Date: 20140711
  Serious: Yes (Other)
  Sender: FDA-Public Use
  Company Number: B0927395A

PATIENT
  Age: 57 Year
  Sex: Female

DRUGS (7)
  1. LAPATINIB [Suspect]
     Indication: METASTASES TO LIVER
  2. CAPECITABINE [Concomitant]
  3. PREDNISONE [Concomitant]
  4. PACLITAXEL [Concomitant]
  5. VINORELBINE TARTRATE [Concomitant]
  6. TRASTUZUMAB [Concomitant]
  7. ACEBUTOLOL [Concomitant]

REACTIONS (1)
  - Hypersensitivity vasculitis [None]
